FAERS Safety Report 6299919-9 (Version None)
Quarter: 2009Q3

REPORT INFORMATION
  Report Type: 
  Country: None (occurrence: None)
  Receive Date: 20090806
  Receipt Date: 20090803
  Transmission Date: 20100115
  Serious: Yes (Death, Other)
  Sender: FDA-Public Use
  Company Number: PHHY2009IT32219

PATIENT
  Age: 44 Year
  Sex: Male

DRUGS (8)
  1. CYCLOSPORINE [Suspect]
     Indication: LIVER TRANSPLANT
     Dosage: 700 MG/DAY
  2. CYCLOSPORINE [Interacting]
     Dosage: 50 MG
  3. GLUCOCORTICOIDS [Concomitant]
     Indication: LIVER TRANSPLANT
  4. AMPRENAVIR [Interacting]
     Indication: HIV INFECTION
     Dosage: 450 MG, BID
  5. RITONAVIR [Interacting]
     Indication: HIV INFECTION
     Dosage: 100 MG, BID
  6. LAMIVUDINE [Concomitant]
     Indication: HIV INFECTION
  7. TENOFOVIR [Concomitant]
     Indication: HIV INFECTION
  8. ENFUVIRTIDE [Concomitant]
     Indication: HIV INFECTION

REACTIONS (7)
  - CARDIAC TAMPONADE [None]
  - DRUG INTERACTION [None]
  - IMMUNOSUPPRESSANT DRUG LEVEL INCREASED [None]
  - MULTI-ORGAN FAILURE [None]
  - NEPHROPATHY TOXIC [None]
  - RENAL FAILURE ACUTE [None]
  - RENAL IMPAIRMENT [None]
